FAERS Safety Report 12678967 (Version 1)
Quarter: 2016Q3

REPORT INFORMATION
  Report Type: Report from Study
  Country: FR (occurrence: FR)
  Receive Date: 20160824
  Receipt Date: 20160824
  Transmission Date: 20161109
  Serious: Yes (Other)
  Sender: FDA-Public Use
  Company Number: FR-ROCHE-1817759

PATIENT
  Sex: Female

DRUGS (3)
  1. RANIBIZUMAB [Suspect]
     Active Substance: RANIBIZUMAB
     Dosage: 0.5 MG, UNK (BOTH EYES)
     Route: 050
     Dates: start: 20150225
  2. RANIBIZUMAB [Suspect]
     Active Substance: RANIBIZUMAB
     Indication: DIABETIC RETINAL OEDEMA
     Dosage: 0.5 MG, UNK (BOTH EYES)
     Route: 050
     Dates: start: 20150128
  3. RANIBIZUMAB [Suspect]
     Active Substance: RANIBIZUMAB
     Dosage: 0.5 MG, UNK (BOTH EYES)
     Route: 050
     Dates: start: 20150318, end: 20150318

REACTIONS (5)
  - Eye pain [Recovered/Resolved]
  - Eyelid irritation [Recovered/Resolved]
  - Ocular discomfort [Unknown]
  - Vitreous haemorrhage [Unknown]
  - Diabetic retinopathy [Unknown]

NARRATIVE: CASE EVENT DATE: 20150203
